FAERS Safety Report 7730391-5 (Version None)
Quarter: 2011Q3

REPORT INFORMATION
  Report Type: 
  Country: None (occurrence: None)
  Receive Date: 20110906
  Receipt Date: 20110822
  Transmission Date: 20111222
  Serious: Yes (Death)
  Sender: FDA-Public Use
  Company Number: US-MYLANLABS-2011S1018264

PATIENT

DRUGS (5)
  1. RAPAMUNE [Suspect]
     Indication: PROPHYLAXIS AGAINST TRANSPLANT REJECTION
     Route: 048
  2. RAPAMUNE [Suspect]
     Route: 048
  3. MELPHALAN [Suspect]
     Indication: BONE MARROW CONDITIONING REGIMEN
     Route: 042
  4. CLOFARABINE [Suspect]
     Indication: BONE MARROW CONDITIONING REGIMEN
     Route: 042
  5. TACROLIMUS [Suspect]
     Indication: PROPHYLAXIS AGAINST TRANSPLANT REJECTION
     Route: 042

REACTIONS (3)
  - THROMBOTIC MICROANGIOPATHY [None]
  - HAEMORRHAGE INTRACRANIAL [None]
  - GRAFT VERSUS HOST DISEASE [None]
